FAERS Safety Report 5327746-5 (Version None)
Quarter: 2007Q2

REPORT INFORMATION
  Report Type: 
  Country: None (occurrence: None)
  Receive Date: 20070226
  Receipt Date: 20060911
  Transmission Date: 20071010
  Serious: Yes (Other)
  Sender: FDA-Public Use
  Company Number: 2006BH013323

PATIENT
  Age: 36 Year
  Sex: Female

DRUGS (1)
  1. BREVIBLOC [Suspect]
     Indication: BLOOD PRESSURE INCREASED

REACTIONS (2)
  - NECROSIS [None]
  - PHLEBITIS [None]
